FAERS Safety Report 25026314 (Version 4)
Quarter: 2025Q3

REPORT INFORMATION
  Report Type: Spontaneous
  Country: US (occurrence: US)
  Receive Date: 20250301
  Receipt Date: 20250810
  Transmission Date: 20251020
  Serious: No
  Sender: ALEXION PHARMACEUTICALS
  Company Number: US-AstraZeneca-CH-00817191A

PATIENT
  Sex: Male
  Weight: 158.73 kg

DRUGS (19)
  1. FASENRA [Suspect]
     Active Substance: BENRALIZUMAB
  2. FASENRA [Suspect]
     Active Substance: BENRALIZUMAB
     Dosage: UNK, Q8W FOR MAINTAINANCE
  3. BUDESONIDE [Suspect]
     Active Substance: BUDESONIDE
     Route: 065
  4. ALBUTEROL SULFATE [Concomitant]
     Active Substance: ALBUTEROL SULFATE
  5. ALLEGRA [Concomitant]
     Active Substance: FEXOFENADINE HYDROCHLORIDE
  6. ALPRAZOLAM [Concomitant]
     Active Substance: ALPRAZOLAM
  7. ASPIRIN [Concomitant]
     Active Substance: ASPIRIN
  8. AZELASTINE [Concomitant]
     Active Substance: AZELASTINE
     Dosage: USE 1 SPRAY IN EACH NOSTRIL
  9. BENZONATATE [Concomitant]
     Active Substance: BENZONATATE
  10. BREO ELLIPTA [Concomitant]
     Active Substance: FLUTICASONE FUROATE\VILANTEROL TRIFENATATE
  11. BUDESONIDE [Concomitant]
     Active Substance: BUDESONIDE
  12. EPINEPHRINE [Concomitant]
     Active Substance: EPINEPHRINE
     Indication: Anaphylactic reaction
  13. FLUTICASONE PROPIONATE [Concomitant]
     Active Substance: FLUTICASONE PROPIONATE
  14. LEXAPRO [Concomitant]
     Active Substance: ESCITALOPRAM OXALATE
  15. PANTOPRAZOLE SODIUM [Concomitant]
     Active Substance: PANTOPRAZOLE SODIUM
  16. PREDNISONE [Concomitant]
     Active Substance: PREDNISONE
  17. SUDAFED PE CONGESTION [Concomitant]
     Active Substance: PHENYLEPHRINE HYDROCHLORIDE
  18. VITAMIN B12 [Concomitant]
     Active Substance: CYANOCOBALAMIN
  19. VITAMIN D [Concomitant]
     Active Substance: VITAMIN D NOS

REACTIONS (13)
  - Arthralgia [Unknown]
  - Antinuclear antibody positive [Unknown]
  - Blood immunoglobulin E increased [Unknown]
  - Nasal congestion [Unknown]
  - Rash [Recovered/Resolved]
  - Nasal congestion [Unknown]
  - Asthenia [Unknown]
  - Arthralgia [Unknown]
  - Arthralgia [Unknown]
  - Chest pain [Unknown]
  - Pain [Unknown]
  - Eosinophil count [Unknown]
  - Blood immunoglobulin E [Unknown]
